FAERS Safety Report 8844625 (Version 4)
Quarter: 2013Q4

REPORT INFORMATION
  Report Type: Spontaneous
  Country: US (occurrence: None)
  Receive Date: 20120426
  Receipt Date: 20131226
  Transmission Date: 20140711
  Serious: Yes (Other)
  Sender: FDA-Public Use
  Company Number: PHEH2011US012133

PATIENT
  Age: 44 Year
  Sex: Female
  Weight: 122 kg

DRUGS (13)
  1. GILENYA (FTY) CAPSULE, 0.5MG [Suspect]
     Indication: MULTIPLE SCLEROSIS
     Route: 048
     Dates: start: 20111003
  2. IMITREX (SUMATRIPTAN SUCCINATE) [Concomitant]
  3. VICODIN (HYDROCODONE BITARTRATE PARACETAMOL) [Concomitant]
  4. NUVIGIL (ARMODAFINIL) [Concomitant]
  5. LAMOTRIGINE (LAMOTRIGINE) [Concomitant]
  6. WELLBUTRIN (BUPROPION HYDROCHLORIDE) [Concomitant]
  7. VITAMIN D (ERGOCALCIFEROL) [Concomitant]
  8. KLONOPIN (CLONAZEPAM) [Concomitant]
  9. LEXAPRO (ESCITALOPRAM OXALATE) [Concomitant]
  10. MIRAPEX (PRAMIPEXOLE DIHYDROCHLORIDE) [Concomitant]
  11. CONCERTA METHYLPHENIDATE HYDROCHLORIDE) [Concomitant]
  12. CLONAZEPAM (CLONAZEPAM) [Concomitant]
  13. LAMICTAL (LAMOTRIGINE) [Concomitant]

REACTIONS (11)
  - Abdominal discomfort [None]
  - Wrong technique in drug usage process [None]
  - Night sweats [None]
  - Nightmare [None]
  - Fatigue [None]
  - Dyspepsia [None]
  - Back pain [None]
  - Abdominal distension [None]
  - Incorrect dose administered [None]
  - Dyspepsia [None]
  - Back pain [None]
